FAERS Safety Report 4445188-1 (Version None)
Quarter: 2004Q3

REPORT INFORMATION
  Report Type: 
  Country: None (occurrence: None)
  Receive Date: 20040903
  Receipt Date: 20040820
  Transmission Date: 20050211
  Serious: Yes (Other)
  Sender: FDA-Public Use
  Company Number: 2004S1000172

PATIENT
  Age: 33 Year
  Sex: Female
  Weight: 99 kg

DRUGS (8)
  1. CUBICIN [Suspect]
     Indication: BACTERAEMIA
     Dosage: 6 MG/KG; TIW; IV
     Route: 042
     Dates: start: 20040817, end: 20040801
  2. CUBICIN [Suspect]
     Indication: CATHETER RELATED INFECTION
     Dosage: 6 MG/KG; TIW; IV
     Route: 042
     Dates: start: 20040817, end: 20040801
  3. CUBICIN [Suspect]
     Indication: ENTEROCOCCAL INFECTION
     Dosage: 6 MG/KG; TIW; IV
     Route: 042
     Dates: start: 20040817, end: 20040801
  4. CUBICIN [Suspect]
     Indication: STAPHYLOCOCCAL INFECTION
     Dosage: 6 MG/KG; TIW; IV
     Route: 042
     Dates: start: 20040817, end: 20040801
  5. CEFEPIME [Concomitant]
  6. METRONIDAZOLE [Concomitant]
  7. PANTOPRAZOLE [Concomitant]
  8. HEPARIN [Concomitant]

REACTIONS (12)
  - ACTIVATED PARTIAL THROMBOPLASTIN TIME PROLONGED [None]
  - ADRENAL INSUFFICIENCY [None]
  - ALANINE AMINOTRANSFERASE INCREASED [None]
  - BLOOD ALKALINE PHOSPHATASE INCREASED [None]
  - BLOOD BILIRUBIN INCREASED [None]
  - DIALYSIS [None]
  - EPISTAXIS [None]
  - HAEMORRHAGE [None]
  - INTERNATIONAL NORMALISED RATIO INCREASED [None]
  - LIVER DISORDER [None]
  - OFF LABEL USE [None]
  - TRACHEOSTOMY [None]
